FAERS Safety Report 9218046 (Version 1)
Quarter: 2013Q2

REPORT INFORMATION
  Report Type: Spontaneous
  Country: US (occurrence: US)
  Receive Date: 20130408
  Receipt Date: 20130408
  Transmission Date: 20140414
  Serious: Yes (Death, Hospitalization)
  Sender: FDA-Public Use
  Company Number: US-GLAXOSMITHKLINE-A0794205A

PATIENT
  Age: 71 Year
  Sex: Female
  Weight: 105 kg

DRUGS (1)
  1. AVANDIA [Suspect]
     Indication: DIABETES MELLITUS
     Route: 048
     Dates: start: 20060110, end: 20070130

REACTIONS (5)
  - Cardiac arrest [Unknown]
  - Acute coronary syndrome [Fatal]
  - Myocardial infarction [Unknown]
  - Heart injury [Unknown]
  - Coronary artery disease [Unknown]
